FAERS Safety Report 5273591-9 (Version None)
Quarter: 2007Q1

REPORT INFORMATION
  Report Type: 
  Country: None (occurrence: None)
  Receive Date: 20061219
  Receipt Date: 20060919
  Transmission Date: 20070707
  Serious: Yes (Hospitalization)
  Sender: FDA-Public Use
  Company Number: US-JNJFOC-20060204161

PATIENT
  Age: 34 Year
  Sex: Female
  Weight: 99.7913 kg

DRUGS (2)
  1. ORTHO EVRA [Suspect]
     Indication: CONTRACEPTION
     Dates: start: 20031101, end: 20040201
  2. PAXIL CR [Concomitant]

REACTIONS (1)
  - PULMONARY EMBOLISM [None]
